FAERS Safety Report 18106350 (Version 1)
Quarter: 2020Q3

REPORT INFORMATION
  Report Type: Spontaneous
  Country: CN (occurrence: CN)
  Receive Date: 20200803
  Receipt Date: 20200803
  Transmission Date: 20201103
  Serious: Yes (Death)
  Sender: FDA-Public Use
  Company Number: CN-EPIC PHARMA LLC-2020EPC00236

PATIENT
  Age: 36 Year
  Sex: Male

DRUGS (3)
  1. POTASSIUM CHLORIDE. [Suspect]
     Active Substance: POTASSIUM CHLORIDE
     Route: 042
  2. ZOLPIDEM [Suspect]
     Active Substance: ZOLPIDEM TARTRATE
     Route: 048
  3. PROPOFOL. [Suspect]
     Active Substance: PROPOFOL
     Route: 042

REACTIONS (4)
  - Victim of homicide [Fatal]
  - Poisoning deliberate [Fatal]
  - Respiratory failure [Fatal]
  - Circulatory collapse [Fatal]
